FAERS Safety Report 25925071 (Version 1)
Quarter: 2025Q4

REPORT INFORMATION
  Report Type: Spontaneous
  Country: US (occurrence: None)
  Receive Date: 20251013
  Receipt Date: 20251013
  Transmission Date: 20260118
  Serious: No
  Sender: FDA-CTU
  Company Number: None

PATIENT
  Age: 33 Year
  Sex: Male
  Weight: 63 kg

DRUGS (2)
  1. LEVOCETIRIZINE DIHYDROCHLORIDE [Suspect]
     Active Substance: LEVOCETIRIZINE DIHYDROCHLORIDE
     Indication: Seasonal allergy
     Dosage: ?1 TABLET AT BEDTIME ORAL
     Route: 048
     Dates: start: 20250401, end: 20251009
  2. LEVOCETIRIZINE DIHYDROCHLORIDE [Suspect]
     Active Substance: LEVOCETIRIZINE DIHYDROCHLORIDE
     Indication: Seasonal allergy

REACTIONS (3)
  - Pruritus [None]
  - Pruritus [None]
  - Middle insomnia [None]

NARRATIVE: CASE EVENT DATE: 20251012
